FAERS Safety Report 4673725-0 (Version None)
Quarter: 2005Q2

REPORT INFORMATION
  Report Type: 
  Country: None (occurrence: None)
  Receive Date: 20050523
  Receipt Date: 20050509
  Transmission Date: 20051028
  Serious: Yes (Other)
  Sender: FDA-Public Use
  Company Number: 2005073501

PATIENT
  Age: 74 Year
  Sex: Female
  Weight: 72.5755 kg

DRUGS (4)
  1. BENADRYL [Suspect]
     Indication: PROPHYLAXIS
     Dosage: 50 MG (1 IN 1 D) INTRAVENOUS
     Route: 042
     Dates: start: 20050301, end: 20050506
  2. BENADRYL [Suspect]
     Indication: PROPHYLAXIS
     Dosage: 25 MG (1 IN 1 D) ORAL
     Route: 048
     Dates: start: 20050301, end: 20050506
  3. RITUXAN [Suspect]
     Indication: CHRONIC LYMPHOCYTIC LEUKAEMIA
  4. LEVOTHYROXINE [Concomitant]

REACTIONS (6)
  - BRAIN OEDEMA [None]
  - FEELING ABNORMAL [None]
  - FLUSHING [None]
  - HEADACHE [None]
  - MANIA [None]
  - ROAD TRAFFIC ACCIDENT [None]
